FAERS Safety Report 5062053-X (Version None)
Quarter: 2006Q3

REPORT INFORMATION
  Report Type: 
  Country: None (occurrence: None)
  Receive Date: 20060703
  Receipt Date: 20051004
  Transmission Date: 20061208
  Serious: No
  Sender: FDA-Public Use
  Company Number: 2005S1009830

PATIENT
  Age: 43 Year
  Sex: Male

DRUGS (6)
  1. CLOZAPINE [Suspect]
     Dosage: 600 MG;HS;PO
     Route: 049
     Dates: start: 20030710
  2. IPRATROPIUM BROMIDE [Concomitant]
  3. LITHIUM CARBONATE [Concomitant]
  4. LORAZEPAM [Concomitant]
  5. BENZTROPINE MESYLATE [Concomitant]
  6. PROPRANOLOL [Concomitant]

REACTIONS (1)
  - GRANULOCYTOPENIA [None]
